FAERS Safety Report 9329766 (Version 1)
Quarter: 2013Q2

REPORT INFORMATION
  Report Type: Spontaneous
  Country: US (occurrence: US)
  Receive Date: 20130604
  Receipt Date: 20130604
  Transmission Date: 20140414
  Serious: Yes (Other)
  Sender: FDA-Public Use
  Company Number: US-SANOFI-AVENTIS-2013SA036420

PATIENT
  Age: 60 Year
  Sex: Male

DRUGS (1)
  1. LANTUS [Suspect]
     Indication: TYPE 1 DIABETES MELLITUS
     Dosage: 15 UNITS IN MORNING AND 15 UNITS IN EVENING DOSE:15 UNIT(S)
     Route: 051

REACTIONS (2)
  - Convulsion [Unknown]
  - Blood glucose decreased [Unknown]
